FAERS Safety Report 7964858-1 (Version None)
Quarter: 2011Q4

REPORT INFORMATION
  Report Type: 
  Country: None (occurrence: None)
  Receive Date: 20111208
  Receipt Date: 20111130
  Transmission Date: 20120403
  Serious: Yes (Hospitalization)
  Sender: FDA-Public Use
  Company Number: PHHY2011DE08842

PATIENT
  Age: 75 Year
  Sex: Female

DRUGS (10)
  1. NITRENDIPINE [Concomitant]
  2. ATACAND [Concomitant]
     Dosage: 1 DF, BID
     Route: 048
  3. RASILEZ [Suspect]
     Dosage: 150 MG, QD
     Route: 048
     Dates: start: 20100101
  4. RASILEZ [Suspect]
     Dosage: 1 DF, QD
     Route: 048
  5. HYDROCHLOROTHIAZIDE [Suspect]
     Indication: HYPERTENSION
     Dosage: 0.5 DF, QD
     Route: 048
  6. RASILEZ [Suspect]
     Indication: HYPERTENSION
     Dosage: 1 DF, QD
     Route: 048
     Dates: start: 20091001, end: 20091001
  7. MERSOL [Concomitant]
  8. ATACAND [Concomitant]
     Dosage: 8 MG, UNK
  9. CARVEDILOL [Concomitant]
     Dosage: 1 DF, BID
  10. LERCANIDIPINE [Concomitant]
     Dosage: 1 DF, BID

REACTIONS (7)
  - NAUSEA [None]
  - CHEST PAIN [None]
  - BLOOD PRESSURE SYSTOLIC INCREASED [None]
  - TINNITUS [None]
  - DIZZINESS [None]
  - HEADACHE [None]
  - DRUG INTOLERANCE [None]
